FAERS Safety Report 8394941-0 (Version None)
Quarter: 2012Q2

REPORT INFORMATION
  Report Type: 
  Country: None (occurrence: None)
  Receive Date: 20120530
  Receipt Date: 20111003
  Transmission Date: 20120825
  Serious: No
  Sender: FDA-Public Use
  Company Number: US-GLAXOSMITHKLINE-A0949384A

PATIENT

DRUGS (1)
  1. FLOLAN [Suspect]

REACTIONS (1)
  - BLOOD GLUCOSE INCREASED [None]
